FAERS Safety Report 22516593 (Version 4)
Quarter: 2023Q2

REPORT INFORMATION
  Report Type: Spontaneous
  Country: US (occurrence: US)
  Receive Date: 20230603
  Receipt Date: 20230629
  Transmission Date: 20230721
  Serious: No
  Sender: FDA-Public Use
  Company Number: US-UNITED THERAPEUTICS-UNT-2023-015198

PATIENT
  Sex: Female
  Weight: 104.76 kg

DRUGS (9)
  1. REMODULIN [Suspect]
     Active Substance: TREPROSTINIL
     Indication: Pulmonary arterial hypertension
     Dosage: 0.04625 ?G/KG, CONTINUING (SELF FILL WITH 2.6 ML PER CASSETTE; RATE 28 MCL PER HOUR)
     Route: 058
  2. REMODULIN [Suspect]
     Active Substance: TREPROSTINIL
     Dosage: UNK, CONTINUING
     Route: 058
     Dates: start: 20221019
  3. REMODULIN [Suspect]
     Active Substance: TREPROSTINIL
     Indication: Pulmonary arterial hypertension
     Dosage: 0.048 ?G/KG, CONTINUING  (PHARMACY FILLED WITH 2.8 ML PER CASSETTE. RATE OF 29 MCL PER HOUR)
     Route: 058
  4. REMODULIN [Suspect]
     Active Substance: TREPROSTINIL
     Dosage: 0.04975 ?G/KG, CONTINUING  (PHARMACY PRE-FILLED WITH 3 ML PER CASSETTE, RATE OF 30 MCL PER HOUR)
     Route: 058
  5. REMODULIN [Suspect]
     Active Substance: TREPROSTINIL
     Dosage: 0.0545 ?G/KG, CONTINUING  (PHARMACY PRE-FILLED WITH 3 ML PER CASSETTE, RATE OF 33 MCL PER HOUR)
     Route: 058
  6. REMODULIN [Suspect]
     Active Substance: TREPROSTINIL
     Dosage: UNK, CONTINUING
     Route: 058
  7. OPSUMIT [Concomitant]
     Active Substance: MACITENTAN
     Indication: Product used for unknown indication
     Dosage: UNK
     Route: 065
  8. SILDENAFIL [Concomitant]
     Active Substance: SILDENAFIL
     Indication: Product used for unknown indication
     Dosage: UNK
     Route: 065
  9. AMLODIPINE [Concomitant]
     Active Substance: AMLODIPINE BESYLATE
     Indication: Product used for unknown indication
     Dosage: UNK
     Route: 065

REACTIONS (5)
  - Infusion site reaction [Unknown]
  - Infusion site infection [Recovering/Resolving]
  - Infusion site discolouration [Unknown]
  - Infusion site induration [Not Recovered/Not Resolved]
  - Device failure [Unknown]

NARRATIVE: CASE EVENT DATE: 20230101
